FAERS Safety Report 5422118-7 (Version None)
Quarter: 2007Q3

REPORT INFORMATION
  Report Type: 
  Country: None (occurrence: None)
  Receive Date: 20070822
  Receipt Date: 20070815
  Transmission Date: 20080115
  Serious: Yes (Hospitalization)
  Sender: FDA-Public Use
  Company Number: US-JNJFOC-20070803654

PATIENT
  Age: 36 Year
  Sex: Female
  Weight: 63.5 kg

DRUGS (4)
  1. ORTHO EVRA [Suspect]
     Route: 062
  2. ORTHO EVRA [Suspect]
     Indication: CONTRACEPTION
     Route: 062
  3. PEPCID [Concomitant]
     Indication: CHEST PAIN
     Route: 048
  4. ASPIRIN [Concomitant]
     Indication: CHEST PAIN
     Route: 048

REACTIONS (10)
  - ABDOMINAL PAIN UPPER [None]
  - CHEST PAIN [None]
  - COUGH [None]
  - FIBRIN D DIMER INCREASED [None]
  - HEADACHE [None]
  - HYPOTENSION [None]
  - INFLUENZA LIKE ILLNESS [None]
  - MALAISE [None]
  - PAIN IN EXTREMITY [None]
  - PALLOR [None]
